FAERS Safety Report 11646813 (Version 1)
Quarter: 2015Q4

REPORT INFORMATION
  Report Type: Spontaneous
  Country: US (occurrence: US)
  Receive Date: 20151020
  Receipt Date: 20151020
  Transmission Date: 20160304
  Serious: No
  Sender: FDA-Public Use
  Company Number: US-ROCHE-ITM201506IM017518

PATIENT
  Sex: Male
  Weight: 103.51 kg

DRUGS (2)
  1. ESBRIET [Suspect]
     Active Substance: PIRFENIDONE
     Indication: IDIOPATHIC PULMONARY FIBROSIS
     Dosage: 3 CAPSULES THREE TIMES A DAY
     Route: 048
     Dates: start: 20150423
  2. ESBRIET [Suspect]
     Active Substance: PIRFENIDONE
     Dosage: 3 CAPSULES
     Route: 048
     Dates: start: 20150711

REACTIONS (3)
  - Constipation [Unknown]
  - Diarrhoea [Unknown]
  - Malaise [Unknown]
